FAERS Safety Report 5153891-3 (Version None)
Quarter: 2006Q4

REPORT INFORMATION
  Report Type: 
  Country: None (occurrence: None)
  Receive Date: 20061120
  Receipt Date: 20061108
  Transmission Date: 20070319
  Serious: Yes (Other)
  Sender: FDA-Public Use
  Company Number: PHBS2006BE17583

PATIENT
  Age: 41 Year
  Sex: Female

DRUGS (3)
  1. ZOMETA [Suspect]
     Dates: start: 20050302
  2. CHEMOTHERAPEUTICS,OTHER [Concomitant]
  3. HORMONAL TREATMENT [Concomitant]

REACTIONS (2)
  - OSTEITIS [None]
  - WOUND DEBRIDEMENT [None]
